FAERS Safety Report 9331488 (Version 1)
Quarter: 2013Q2

REPORT INFORMATION
  Report Type: Spontaneous
  Country: US (occurrence: US)
  Receive Date: 20130605
  Receipt Date: 20130605
  Transmission Date: 20140414
  Serious: No
  Sender: FDA-Public Use
  Company Number: US-PFIZER INC-2013169948

PATIENT
  Sex: Male
  Weight: 72.11 kg

DRUGS (4)
  1. LIPITOR [Suspect]
     Indication: BLOOD CHOLESTEROL INCREASED
     Dosage: SPLITTING THE 20 MG TABLET INTO HALF, 1X/DAY
     Route: 048
     Dates: start: 2003
  2. LIPITOR [Suspect]
     Dosage: SPLITTING THE 20 MG TABLET INTO HALF, 1X/DAY
     Route: 048
     Dates: start: 201302, end: 201305
  3. GLIPIZIDE [Concomitant]
     Indication: DIABETES MELLITUS
     Dosage: 5 MG, 1X/DAY
     Route: 048
  4. METFORMIN [Concomitant]
     Indication: DIABETES MELLITUS
     Dosage: SPLITTING THE 500 MG TABLET INTO HALF, 2X/DAY
     Route: 048

REACTIONS (2)
  - Muscle spasms [Recovered/Resolved]
  - Intentional drug misuse [Recovered/Resolved]
